FAERS Safety Report 4526297-5 (Version None)
Quarter: 2004Q4

REPORT INFORMATION
  Report Type: 
  Country: None (occurrence: None)
  Receive Date: 20041213
  Receipt Date: 20041213
  Transmission Date: 20050328
  Serious: No
  Sender: FDA-Public Use
  Company Number: None

PATIENT
  Age: 75 Year
  Sex: Female
  Weight: 53.978 kg

DRUGS (1)
  1. GENERIC CHOLESTYRAMINE [Suspect]
     Indication: BILIARY CIRRHOSIS PRIMARY
     Dosage: 1 SCOOP PO DAILY
     Route: 048

REACTIONS (3)
  - DIARRHOEA [None]
  - NAUSEA [None]
  - PHARMACEUTICAL PRODUCT COMPLAINT [None]
